FAERS Safety Report 8778664 (Version 1)
Quarter: 2012Q4

REPORT INFORMATION
  Report Type: 
  Country: IT (occurrence: FR)
  Receive Date: 20120912
  Receipt Date: 20120912
  Transmission Date: 20130627
  Serious: Yes (Hospitalization)
  Sender: FDA-Public Use
  Company Number: FR-FRI-1000038480

PATIENT
  Age: 81 Year
  Sex: Male

DRUGS (9)
  1. NEBIVOLOL [Suspect]
     Indication: ATRIAL FIBRILLATION
     Dosage: 2.5 mg
     Route: 048
     Dates: start: 20120705
  2. AMIODARONE [Suspect]
     Indication: ATRIAL FIBRILLATION
     Dosage: 200 mg
     Route: 048
     Dates: start: 20120705, end: 20120710
  3. FUROSEMIDE [Concomitant]
     Indication: HYPERTENSION
     Dosage: 40 mg
     Route: 048
  4. FENOFIBRATE [Concomitant]
     Indication: HYPERCHOLESTEROLAEMIA
     Dosage: 300 mg
  5. STAGID [Concomitant]
     Indication: TYPE 2 DIABETES MELLITUS
     Dosage: 700 mg
     Route: 048
     Dates: end: 20120710
  6. VELMETIA [Concomitant]
     Indication: TYPE 2 DIABETES MELLITUS
     Dosage: 50mg/1000mg BID
     Route: 048
     Dates: end: 20120710
  7. PREVISCAN [Concomitant]
     Dosage: 0.75 DF
     Route: 048
     Dates: start: 2005
  8. NASONEX [Concomitant]
     Dosage: 100 mcg
     Route: 045
  9. FLECAINE [Concomitant]
     Dosage: 150 mg
     Route: 048
     Dates: end: 20120705

REACTIONS (1)
  - Hepatitis acute [Recovering/Resolving]
